FAERS Safety Report 5441750-8 (Version None)
Quarter: 2007Q3

REPORT INFORMATION
  Report Type: 
  Country: None (occurrence: None)
  Receive Date: 20070904
  Receipt Date: 20070823
  Transmission Date: 20080115
  Serious: Yes (Hospitalization, Other)
  Sender: FDA-Public Use
  Company Number: BR-BRISTOL-MYERS SQUIBB COMPANY-13892088

PATIENT
  Age: 43 Year
  Sex: Male

DRUGS (9)
  1. EFAVIRENZ [Suspect]
     Indication: ACQUIRED IMMUNODEFICIENCY SYNDROME
     Route: 048
     Dates: start: 20030801
  2. ETHAMBUTOL HYDROCHLORIDE [Concomitant]
     Dates: start: 20031101
  3. FLUCONAZOLE [Concomitant]
  4. ISONIAZID [Concomitant]
  5. LAMIVUDINE [Concomitant]
     Dates: start: 20030801
  6. OFLOXACIN [Concomitant]
     Dates: start: 20031101
  7. PYRAZINAMIDE [Concomitant]
  8. ZIDOVUDINE [Concomitant]
     Dates: start: 20030801
  9. SULFAMETHOXAZOLE AND TRIMETHOPRIM [Concomitant]

REACTIONS (9)
  - BK VIRUS INFECTION [None]
  - CONFUSIONAL STATE [None]
  - COORDINATION ABNORMAL [None]
  - DYSARTHRIA [None]
  - ENCEPHALITIS [None]
  - GAIT DISTURBANCE [None]
  - HEADACHE [None]
  - MEMORY IMPAIRMENT [None]
  - SPEECH DISORDER [None]
